FAERS Safety Report 24385438 (Version 1)
Quarter: 2024Q4

REPORT INFORMATION
  Report Type: Spontaneous
  Country: US (occurrence: US)
  Receive Date: 20241001
  Receipt Date: 20241001
  Transmission Date: 20250114
  Serious: No
  Sender: SANOFI AVENTIS
  Company Number: US-SA-2024SA278214

PATIENT
  Age: 26 Year
  Sex: Male

DRUGS (2)
  1. DUPIXENT [Suspect]
     Active Substance: DUPILUMAB
     Dosage: 300 MG, QOW
     Route: 058
  2. BETAMETHASONE [Suspect]
     Active Substance: BETAMETHASONE

REACTIONS (3)
  - Pain [Recovering/Resolving]
  - Dermatitis acneiform [Unknown]
  - Erythema [Unknown]
